FAERS Safety Report 6671088-2 (Version None)
Quarter: 2010Q2

REPORT INFORMATION
  Report Type: 
  Country: None (occurrence: None)
  Receive Date: 20100406
  Receipt Date: 20100406
  Transmission Date: 20101027
  Serious: No
  Sender: FDA-Public Use
  Company Number: None

PATIENT
  Age: 63 Year
  Sex: Male
  Weight: 124.3 kg

DRUGS (1)
  1. METHADONE HCL [Suspect]
     Dosage: 10 MG BID PO
     Route: 048
     Dates: start: 20100202, end: 20100216

REACTIONS (1)
  - SEDATION [None]
